FAERS Safety Report 7728960-1 (Version None)
Quarter: 2011Q3

REPORT INFORMATION
  Report Type: 
  Country: None (occurrence: None)
  Receive Date: 20110906
  Receipt Date: 20110627
  Transmission Date: 20111222
  Serious: Yes (Other)
  Sender: FDA-Public Use
  Company Number: US-BAYER-2010-008337

PATIENT
  Age: 27 Year
  Sex: Female
  Weight: 111.11 kg

DRUGS (4)
  1. YASMIN [Suspect]
     Indication: PREMENSTRUAL SYNDROME
     Dosage: UNK
     Dates: start: 20010101, end: 20021101
  2. NORTRIPTYLINE HCL [Concomitant]
     Dosage: 25 MG, QD
     Route: 048
  3. PREVACID [Concomitant]
     Dosage: 30 MG, QD
     Route: 048
  4. TOPROL-XL [Concomitant]
     Dosage: 12.5 MG, QD
     Route: 048

REACTIONS (7)
  - POSTURAL ORTHOSTATIC TACHYCARDIA SYNDROME [None]
  - PALPITATIONS [None]
  - SINUS TACHYCARDIA [None]
  - DIZZINESS [None]
  - SYNCOPE [None]
  - PAIN [None]
  - HEART RATE IRREGULAR [None]
